FAERS Safety Report 6692279-0 (Version None)
Quarter: 2010Q2

REPORT INFORMATION
  Report Type: 
  Country: None (occurrence: None)
  Receive Date: 20100419
  Receipt Date: 20100317
  Transmission Date: 20101027
  Serious: Yes (Hospitalization)
  Sender: FDA-Public Use
  Company Number: 2010SP016675

PATIENT
  Age: 89 Year
  Sex: Female

DRUGS (12)
  1. MIRTAZAPINE [Suspect]
     Indication: ABNORMAL BEHAVIOUR
     Dosage: 15 MG; QPM; PO
     Route: 048
     Dates: start: 20100130, end: 20100206
  2. MIRTAZAPINE [Suspect]
     Indication: ABNORMAL BEHAVIOUR
     Dosage: 15 MG; QPM; PO
     Route: 048
     Dates: start: 20100208
  3. LOXAPINE [Suspect]
     Indication: ABNORMAL BEHAVIOUR
     Dosage: 3 GTT; QD; PO
     Route: 048
     Dates: start: 20100130, end: 20100206
  4. LORAZEPAM [Suspect]
     Indication: ABNORMAL BEHAVIOUR
     Dosage: 1 MG; QD; PO
     Route: 048
     Dates: start: 20100118, end: 20100206
  5. SERESTA (OXAZEPAM0 [Suspect]
     Indication: ABNORMAL BEHAVIOUR
     Dosage: 10 MG; BID; PO
     Route: 048
     Dates: start: 20070101, end: 20100206
  6. SERESTA (OXAZEPAM0 [Suspect]
     Indication: ABNORMAL BEHAVIOUR
     Dosage: 10 MG; BID; PO
     Route: 048
     Dates: start: 20100208
  7. PROTELOS (STRONTIUM RANELATE) [Suspect]
     Indication: OSTEOPOROSIS
     Dosage: 2 GM; QD; PO
     Route: 048
     Dates: start: 20070101, end: 20100206
  8. CALCIDOSE VITAMINE D [Concomitant]
  9. LANSOYL [Concomitant]
  10. DOMPERIDONE [Concomitant]
  11. ERCEFURYL [Concomitant]
  12. PREVISCAN [Concomitant]

REACTIONS (6)
  - CEREBRAL ATROPHY [None]
  - DEHYDRATION [None]
  - DRUG INTERACTION [None]
  - LEUKOARAIOSIS [None]
  - PSYCHOMOTOR RETARDATION [None]
  - SOMNOLENCE [None]
